FAERS Safety Report 7394394-5 (Version None)
Quarter: 2011Q2

REPORT INFORMATION
  Report Type: 
  Country: None (occurrence: None)
  Receive Date: 20110405
  Receipt Date: 20110324
  Transmission Date: 20111010
  Serious: Yes (Hospitalization)
  Sender: FDA-Public Use
  Company Number: FR-ROCHE-768760

PATIENT
  Sex: Male

DRUGS (8)
  1. IMOVANE [Concomitant]
     Dosage: DAILY
     Route: 048
  2. TEMESTA [Suspect]
     Dosage: DAILY
     Route: 048
     Dates: start: 20100701
  3. VALIUM [Suspect]
     Route: 048
     Dates: start: 20100701
  4. ABILIFY [Suspect]
     Route: 065
  5. SORIATANE [Suspect]
     Dosage: DAILY
     Route: 048
     Dates: start: 20100701, end: 20100713
  6. DEROXAT [Suspect]
     Dosage: DAILY
     Route: 048
     Dates: start: 20100701, end: 20100713
  7. TERCIAN [Concomitant]
     Dosage: DAILY
     Route: 048
     Dates: end: 20100713
  8. ATHYMIL [Suspect]
     Dosage: DAILY
     Route: 065
     Dates: start: 20100701, end: 20100713

REACTIONS (1)
  - RHABDOMYOLYSIS [None]
